FAERS Safety Report 8419152-1 (Version None)
Quarter: 2012Q2

REPORT INFORMATION
  Report Type: 
  Country: None (occurrence: None)
  Receive Date: 20120607
  Receipt Date: 20120605
  Transmission Date: 20120825
  Serious: Yes (Other)
  Sender: FDA-Public Use
  Company Number: IT-BAYER-2012-055865

PATIENT
  Age: 85 Year
  Sex: Female

DRUGS (4)
  1. TELMISARTAN AND HYDROCHLOROTHIAZIDE [Concomitant]
     Indication: HYPERTENSION
     Dosage: DAILY DOSE 92.5 MG
     Route: 048
  2. ASPIRIN [Suspect]
     Indication: CARDIOVASCULAR EVENT PROPHYLAXIS
     Dosage: 100 MG, QD
     Route: 048
     Dates: start: 20110101, end: 20120429
  3. CLONIDINE [Concomitant]
     Indication: HYPERTENSION
     Dosage: DAILY DOSE 150 ?G
  4. SPIRIVA [Concomitant]
     Indication: CHRONIC OBSTRUCTIVE PULMONARY DISEASE
     Dosage: DAILY DOSE 18 ?G
     Route: 055

REACTIONS (1)
  - HAEMOPTYSIS [None]
